FAERS Safety Report 6695476-3 (Version None)
Quarter: 2010Q2

REPORT INFORMATION
  Report Type: 
  Country: None (occurrence: None)
  Receive Date: 20100422
  Receipt Date: 20100422
  Transmission Date: 20101027
  Serious: Yes (Hospitalization)
  Sender: FDA-Public Use
  Company Number: None

PATIENT
  Sex: Male
  Weight: 104.7 kg

DRUGS (2)
  1. DENILEUKIN DIFITOX (ONTAK;DAB389IL-2) [Suspect]
     Dosage: 7100 MCG
  2. RITUXIMAB (MOAB C2B8 ANTI CD20, CHIMERIC) [Suspect]
     Dosage: 850 MG

REACTIONS (2)
  - CAPILLARY LEAK SYNDROME [None]
  - SHOCK [None]
